FAERS Safety Report 9070887 (Version 1)
Quarter: 2013Q1

REPORT INFORMATION
  Report Type: Spontaneous
  Country: US (occurrence: US)
  Receive Date: 20130129
  Receipt Date: 20130129
  Transmission Date: 20140127
  Serious: Yes (Hospitalization)
  Sender: FDA-Public Use
  Company Number: US-GLAXOSMITHKLINE-A0791916A

PATIENT
  Age: 73 Year
  Sex: Male
  Weight: 90.5 kg

DRUGS (2)
  1. AVANDIA [Suspect]
     Indication: DIABETES MELLITUS
     Route: 048
     Dates: start: 20050217, end: 20050318
  2. AVANDAMET [Suspect]
     Indication: DIABETES MELLITUS
     Route: 048
     Dates: start: 20050105

REACTIONS (3)
  - Cerebrovascular accident [Not Recovered/Not Resolved]
  - Blindness [Unknown]
  - Cardiovascular disorder [Unknown]
